FAERS Safety Report 8112287-2 (Version None)
Quarter: 2012Q1

REPORT INFORMATION
  Report Type: 
  Country: None (occurrence: None)
  Receive Date: 20120203
  Receipt Date: 20120203
  Transmission Date: 20120608
  Serious: No
  Sender: FDA-Public Use
  Company Number: None

PATIENT
  Sex: Female
  Weight: 83.914 kg

DRUGS (3)
  1. LYRICA [Suspect]
     Indication: NEURALGIA
     Dosage: 50.0 MG
     Route: 048
     Dates: start: 20120125, end: 20120131
  2. KLONOPIN [Concomitant]
     Route: 048
  3. LASIX [Concomitant]
     Route: 048

REACTIONS (6)
  - VOMITING [None]
  - OEDEMA PERIPHERAL [None]
  - MIGRAINE [None]
  - BUNDLE BRANCH BLOCK RIGHT [None]
  - PAIN [None]
  - BACK PAIN [None]
